FAERS Safety Report 10801346 (Version 3)
Quarter: 2015Q1

REPORT INFORMATION
  Report Type: Spontaneous
  Country: JP (occurrence: JP)
  Receive Date: 20150217
  Receipt Date: 20150327
  Transmission Date: 20150721
  Serious: Yes (Hospitalization)
  Sender: FDA-Public Use
  Company Number: JP-ROCHE-1538731

PATIENT
  Age: 76 Year
  Sex: Male
  Weight: 59 kg

DRUGS (16)
  1. CALCIUM LEVOFOLINATE [Suspect]
     Active Substance: LEVOLEUCOVORIN CALCIUM
     Indication: RECTAL CANCER METASTATIC
     Dosage: MOST RECENT DOSE PRIOR TO AE: 21/JAN/2015.?TEN COURSES
     Route: 041
     Dates: start: 20140903
  2. SOLU-MEDROL [Concomitant]
     Active Substance: METHYLPREDNISOLONE SODIUM SUCCINATE
     Dosage: ADMINISTERED FOR THREE DAYS
     Route: 065
  3. MAGMITT [Concomitant]
     Active Substance: MAGNESIUM OXIDE
     Route: 048
  4. PREDNISOLONE. [Concomitant]
     Active Substance: PREDNISOLONE
     Route: 065
     Dates: start: 20150210
  5. PREDNISOLONE. [Concomitant]
     Active Substance: PREDNISOLONE
     Route: 065
     Dates: start: 20150212
  6. ELPLAT [Suspect]
     Active Substance: OXALIPLATIN
     Indication: RECTAL CANCER METASTATIC
     Dosage: MOST RECENT DOSE PRIOR TO AE: 21/JAN/2015.?TEN COURSES (MFOLFOX6)
     Route: 041
     Dates: start: 20140903
  7. 5-FU [Suspect]
     Active Substance: FLUOROURACIL
     Indication: RECTAL CANCER METASTATIC
     Dosage: MOST RECENT DOSE PRIOR TO AE: 21/JAN/2015.?TEN COURSES (MFOLFOX6)
     Route: 040
     Dates: start: 20140903
  8. PYRIDOXAL PHOSPHATE [Concomitant]
     Active Substance: PYRIDOXAL PHOSPHATE
     Route: 048
  9. SOLU-MEDROL [Concomitant]
     Active Substance: METHYLPREDNISOLONE SODIUM SUCCINATE
     Dosage: ADMINISTERED FOR THREE DAYS
     Route: 065
  10. AMLODIPINE [Concomitant]
     Active Substance: AMLODIPINE BESYLATE
     Route: 048
  11. PREDNISOLONE. [Concomitant]
     Active Substance: PREDNISOLONE
     Route: 065
     Dates: start: 20150309
  12. AZILVA [Concomitant]
     Active Substance: AZILSARTAN KAMEDOXOMIL
     Route: 048
  13. SENNOSIDE [Concomitant]
     Active Substance: SENNOSIDES
     Route: 048
  14. AVASTIN [Suspect]
     Active Substance: BEVACIZUMAB
     Indication: RECTAL CANCER METASTATIC
     Dosage: MOST RECENT DOSE PRIOR TO AE: 21/JAN/2015.?TEN COURSES
     Route: 041
     Dates: start: 20140903
  15. 5-FU [Suspect]
     Active Substance: FLUOROURACIL
     Dosage: TEN COURSES
     Route: 041
     Dates: start: 20140903, end: 20150121
  16. REBAMIPIDE [Concomitant]
     Active Substance: REBAMIPIDE
     Route: 048

REACTIONS (1)
  - Interstitial lung disease [Recovering/Resolving]

NARRATIVE: CASE EVENT DATE: 20150204
